FAERS Safety Report 7054347-3 (Version None)
Quarter: 2010Q4

REPORT INFORMATION
  Report Type: 
  Country: None (occurrence: None)
  Receive Date: 20101014
  Receipt Date: 20101007
  Transmission Date: 20110411
  Serious: Yes (Death, Life-Threatening, Disabling)
  Sender: FDA-Public Use
  Company Number: 2010JP004731

PATIENT
  Age: 72 Year
  Sex: Male
  Weight: 46 kg

DRUGS (12)
  1. PROGRAF [Suspect]
     Indication: RHEUMATOID ARTHRITIS
     Dosage: 3 MG, ORAL; 0.5 MG, ORAL; 1 MG, ORAL; 2 MG, ORAL; 2.5 MG, ORAL
     Route: 048
     Dates: start: 20100410, end: 20100423
  2. PROGRAF [Suspect]
     Indication: RHEUMATOID ARTHRITIS
     Dosage: 3 MG, ORAL; 0.5 MG, ORAL; 1 MG, ORAL; 2 MG, ORAL; 2.5 MG, ORAL
     Route: 048
     Dates: start: 20100424, end: 20100507
  3. PROGRAF [Suspect]
     Indication: RHEUMATOID ARTHRITIS
     Dosage: 3 MG, ORAL; 0.5 MG, ORAL; 1 MG, ORAL; 2 MG, ORAL; 2.5 MG, ORAL
     Route: 048
     Dates: start: 20100508, end: 20100521
  4. PROGRAF [Suspect]
     Indication: RHEUMATOID ARTHRITIS
     Dosage: 3 MG, ORAL; 0.5 MG, ORAL; 1 MG, ORAL; 2 MG, ORAL; 2.5 MG, ORAL
     Route: 048
     Dates: start: 20100522, end: 20100611
  5. PROGRAF [Suspect]
     Indication: RHEUMATOID ARTHRITIS
     Dosage: 3 MG, ORAL; 0.5 MG, ORAL; 1 MG, ORAL; 2 MG, ORAL; 2.5 MG, ORAL
     Route: 048
     Dates: start: 20100612
  6. CEFZON (CEFDINIR) FORMULATION UNKNOWN [Suspect]
     Indication: NASOPHARYNGITIS
     Dosage: ORAL
     Route: 048
     Dates: start: 20100804, end: 20100805
  7. PL GRAN. (CAFFEINE, PARACETAMOL, PROMETHAZINE METHYLENE DISALICYLATE, [Suspect]
     Indication: NASOPHARYNGITIS
     Dosage: 1 G, TID, ORAL
     Route: 048
     Dates: start: 20100804, end: 20100805
  8. BAYASPIRIN 9ACETYLSALICYLIC ACID) [Concomitant]
  9. OMEPRAZOLE [Concomitant]
  10. FUROSEMIDE [Concomitant]
  11. MOBIC [Concomitant]
  12. FORSENID (SENNOSIDE A+B) [Concomitant]

REACTIONS (6)
  - APLASTIC ANAEMIA [None]
  - INFECTION [None]
  - MELAENA [None]
  - PANCYTOPENIA [None]
  - RESPIRATORY ARREST [None]
  - STEVENS-JOHNSON SYNDROME [None]
